FAERS Safety Report 18213464 (Version 1)
Quarter: 2020Q3

REPORT INFORMATION
  Report Type: Spontaneous
  Country: US (occurrence: US)
  Receive Date: 20200831
  Receipt Date: 20200831
  Transmission Date: 20201103
  Serious: No
  Sender: FDA-Public Use
  Company Number: None

PATIENT
  Age: 33 Year
  Sex: Male
  Weight: 102 kg

DRUGS (1)
  1. ARIPIPRAZOLE (ARIPIPRAZOLE 10MG TAB) [Suspect]
     Active Substance: ARIPIPRAZOLE
     Indication: MOOD SWINGS
     Route: 048
     Dates: start: 20200804, end: 20200810

REACTIONS (5)
  - Rash [None]
  - Swollen tongue [None]
  - Swelling face [None]
  - Angioedema [None]
  - Chest discomfort [None]

NARRATIVE: CASE EVENT DATE: 20200809
